FAERS Safety Report 7931013-0 (Version None)
Quarter: 2011Q4

REPORT INFORMATION
  Report Type: 
  Country: None (occurrence: None)
  Receive Date: 20111121
  Receipt Date: 20111118
  Transmission Date: 20120403
  Serious: Yes (Death)
  Sender: FDA-Public Use
  Company Number: AU-B.I. PHARMACEUTICALS,INC./RIDGEFIELD-2011-AU-02120AU

PATIENT
  Sex: Male
  Weight: 76 kg

DRUGS (10)
  1. PRADAXA [Suspect]
     Indication: ATRIAL FIBRILLATION
  2. SPIRIVA [Concomitant]
     Dosage: 18 MCG
  3. COLOXYL WITH SENNA [Concomitant]
  4. LASIX [Concomitant]
     Dosage: 80 MG
  5. METAMUCIL-2 [Concomitant]
     Dosage: 3.4G/7G 336G
  6. BUPRENORPHINE [Concomitant]
     Dosage: 1.4286 MG
  7. PRADAXA [Suspect]
     Indication: CEREBROVASCULAR ACCIDENT PROPHYLAXIS
     Dosage: 220 MG
     Dates: start: 20110906
  8. MOVIPREP [Concomitant]
  9. PANAMAX [Concomitant]
     Dosage: 4000 MG
  10. VENTOLIN [Concomitant]
     Route: 055

REACTIONS (1)
  - GASTROINTESTINAL DISORDER [None]
